FAERS Safety Report 8809771 (Version 1)
Quarter: 2012Q4

REPORT INFORMATION
  Report Type: 
  Country: US (occurrence: US)
  Receive Date: 20120926
  Receipt Date: 20120926
  Transmission Date: 20130627
  Serious: Yes (Other)
  Sender: FDA-Public Use
  Company Number: PHHY2012US081898

PATIENT
  Age: 69 Year
  Sex: Female

DRUGS (1)
  1. ASCRIPTIN - UNKNOWN FORMULA [Suspect]
     Dosage: 1 DF, UNK
     Route: 048
     Dates: start: 1998

REACTIONS (4)
  - Gout [Unknown]
  - Arthritis [Unknown]
  - Oedema peripheral [Unknown]
  - Incorrect drug administration duration [Unknown]
